FAERS Safety Report 10313828 (Version 4)
Quarter: 2014Q4

REPORT INFORMATION
  Report Type: Report from Study
  Country: US (occurrence: US)
  Receive Date: 20140718
  Receipt Date: 20141002
  Transmission Date: 20150528
  Serious: Yes (Hospitalization, Other)
  Sender: FDA-Public Use
  Company Number: US-BAYER-2013-062419

PATIENT
  Age: 60 Year
  Sex: Male
  Weight: 58.5 kg

DRUGS (18)
  1. IMDUR [Concomitant]
     Active Substance: ISOSORBIDE MONONITRATE
  2. VITAMIN C [Concomitant]
     Active Substance: ASCORBIC ACID
  3. NEXAVAR [Suspect]
     Active Substance: SORAFENIB
     Indication: RENAL CANCER
     Dosage: 200 MG, BID
     Route: 048
     Dates: start: 20091001, end: 20091201
  4. CRANBERRY. [Concomitant]
     Active Substance: CRANBERRY
  5. NEXAVAR [Suspect]
     Active Substance: SORAFENIB
     Indication: RENAL CANCER
     Dosage: 200 MG, BID
     Route: 048
  6. NEXAVAR [Suspect]
     Active Substance: SORAFENIB
     Indication: RENAL CANCER
     Dosage: 200 MG, BID
     Route: 048
     Dates: start: 20130210
  7. ASPIRIN. [Concomitant]
     Active Substance: ASPIRIN
  8. NEXAVAR [Suspect]
     Active Substance: SORAFENIB
     Indication: ACUTE MYELOID LEUKAEMIA
     Dosage: 200 MG, BID
     Route: 048
     Dates: start: 201109
  9. BACTRIM DS [Concomitant]
     Active Substance: SULFAMETHOXAZOLE\TRIMETHOPRIM
  10. GRAPE SEED [Concomitant]
  11. NEXAVAR [Suspect]
     Active Substance: SORAFENIB
     Indication: RENAL CANCER
     Dosage: 2X200MG
     Route: 048
     Dates: end: 20140914
  12. METHADONE [Concomitant]
     Active Substance: METHADONE HYDROCHLORIDE
     Dosage: 200 MG, ONCE
     Route: 048
  13. PANTOPRAZOLE [Concomitant]
     Active Substance: PANTOPRAZOLE SODIUM
  14. METOPROLOL TARTRATE. [Concomitant]
     Active Substance: METOPROLOL TARTRATE
  15. PLAVIX [Concomitant]
     Active Substance: CLOPIDOGREL BISULFATE
  16. ZINC [Concomitant]
     Active Substance: ZINC\ZINC CHLORIDE
  17. NEXAVAR [Suspect]
     Active Substance: SORAFENIB
     Indication: RENAL CANCER
     Dosage: 200 MG, BID
     Route: 048
     Dates: start: 201108
  18. VITAMIN D3 [Concomitant]
     Active Substance: CHOLECALCIFEROL

REACTIONS (12)
  - Gastrointestinal perforation [Recovering/Resolving]
  - Stomatitis [None]
  - Myocardial infarction [None]
  - Pneumonia [None]
  - Coronary artery bypass [None]
  - Pneumonia aspiration [None]
  - Foreign body [None]
  - Varicella [None]
  - Perforated ulcer [None]
  - Myocardial infarction [Unknown]
  - Cardiac failure [None]
  - Measles [None]

NARRATIVE: CASE EVENT DATE: 201305
